FAERS Safety Report 5787459-2 (Version None)
Quarter: 2008Q2

REPORT INFORMATION
  Report Type: 
  Country: None (occurrence: None)
  Receive Date: 20080625
  Receipt Date: 20080617
  Transmission Date: 20081010
  Serious: Yes (Death)
  Sender: FDA-Public Use
  Company Number: US-PURDUE-USA_2008_0033229

PATIENT
  Age: 17 Year
  Sex: Female

DRUGS (2)
  1. OXYCONTIN [Suspect]
     Indication: DRUG ABUSE
  2. DILAUDID [Suspect]
     Indication: DRUG ABUSE

REACTIONS (4)
  - ACCIDENTAL OVERDOSE [None]
  - DRUG ABUSE [None]
  - FEELING COLD [None]
  - RESPIRATORY ARREST [None]
